FAERS Safety Report 8854895 (Version 1)
Quarter: 2012Q4

REPORT INFORMATION
  Report Type: 
  Country: US (occurrence: US)
  Receive Date: 20121023
  Receipt Date: 20121023
  Transmission Date: 20130627
  Serious: Yes (Other)
  Sender: FDA-Public Use
  Company Number: US-BAYER-2012-108644

PATIENT
  Age: 36 Year
  Sex: Female

DRUGS (1)
  1. MIRENA [Suspect]
     Indication: CONTRACEPTION
     Dosage: 20 mcg/24hr, CONT
     Route: 015
     Dates: start: 20121015, end: 20121015

REACTIONS (7)
  - Presyncope [None]
  - Nausea [None]
  - Dizziness [None]
  - Pallor [None]
  - Heart rate decreased [None]
  - Blood pressure decreased [None]
  - Pelvic pain [None]
